FAERS Safety Report 19239640 (Version 1)
Quarter: 2021Q2

REPORT INFORMATION
  Report Type: Spontaneous
  Country: None (occurrence: ZA)
  Receive Date: 20210511
  Receipt Date: 20210511
  Transmission Date: 20210717
  Serious: Yes (Death, Other)
  Sender: FDA-Public Use
  Company Number: ZA-LUPIN PHARMACEUTICALS INC.-2021-06408

PATIENT
  Sex: Male

DRUGS (8)
  1. AMLOC [AMLODIPINE BESYLATE] [Suspect]
     Active Substance: AMLODIPINE BESYLATE
     Indication: HYPERTENSION
     Dosage: 10 MILLIGRAM
     Route: 048
     Dates: end: 202104
  2. CARDICOR [Suspect]
     Active Substance: BISOPROLOL
     Indication: HYPERTENSION
     Dosage: 5 MILLIGRAM
     Route: 048
     Dates: end: 202104
  3. GLUCOPHAGE XR [Suspect]
     Active Substance: METFORMIN HYDROCHLORIDE
     Indication: DIABETES MELLITUS
     Dosage: 1000 MILLIGRAM
     Route: 048
     Dates: end: 202104
  4. ECOTRIN [Suspect]
     Active Substance: ASPIRIN
     Indication: ANTICOAGULANT THERAPY
     Dosage: 81 MILLIGRAM
     Route: 048
     Dates: end: 202104
  5. NOVOMIX [Suspect]
     Active Substance: INSULIN ASPART
     Indication: DIABETES MELLITUS
     Dosage: UNK (INJECTION)
     Route: 065
     Dates: end: 202104
  6. ASPAVOR [Suspect]
     Active Substance: ATORVASTATIN
     Indication: BLOOD CHOLESTEROL ABNORMAL
     Dosage: 20 MILLIGRAM
     Route: 048
     Dates: end: 202104
  7. SPIRACTIN [SPIRONOLACTONE] [Suspect]
     Active Substance: SPIRONOLACTONE
     Indication: DIURETIC THERAPY
     Dosage: 25 MILLIGRAM
     Route: 048
     Dates: end: 202104
  8. PEARINDA PLUS [Suspect]
     Active Substance: INDAPAMIDE\PERINDOPRIL
     Indication: HYPERTENSION
     Dosage: 4/1.25 MILLIGRAM
     Route: 048
     Dates: end: 202104

REACTIONS (1)
  - Brain neoplasm [Fatal]
